FAERS Safety Report 5173202-7 (Version None)
Quarter: 2006Q4

REPORT INFORMATION
  Report Type: 
  Country: None (occurrence: None)
  Receive Date: 20061214
  Receipt Date: 20061116
  Transmission Date: 20070319
  Serious: Yes (Other)
  Sender: FDA-Public Use
  Company Number: 2006PK02382

PATIENT
  Age: 23943 Day
  Sex: Female

DRUGS (3)
  1. NOLVADEX [Suspect]
     Indication: BREAST CANCER
     Route: 048
     Dates: start: 20011126, end: 20031102
  2. NOLVADEX [Suspect]
     Route: 048
     Dates: start: 20050401
  3. ARIMIDEX [Suspect]
     Indication: BREAST CANCER
     Route: 048
     Dates: start: 20031103, end: 20050330

REACTIONS (3)
  - OEDEMA PERIPHERAL [None]
  - OSTEOARTHRITIS [None]
  - TOE DEFORMITY [None]
